FAERS Safety Report 19080841 (Version 3)
Quarter: 2021Q2

REPORT INFORMATION
  Report Type: Spontaneous
  Country: US (occurrence: US)
  Receive Date: 20210331
  Receipt Date: 20210409
  Transmission Date: 20210717
  Serious: Yes (Death)
  Sender: FDA-Public Use
  Company Number: NVSC2021US073864

PATIENT
  Sex: Male

DRUGS (2)
  1. TAFINLAR [Suspect]
     Active Substance: DABRAFENIB MESYLATE
     Indication: ANAPLASTIC THYROID CANCER
     Dosage: 100 MG, Q12H
     Route: 048
     Dates: start: 20210115
  2. MEKINIST [Suspect]
     Active Substance: TRAMETINIB DIMETHYL SULFOXIDE
     Indication: ANAPLASTIC THYROID CANCER
     Dosage: UNK
     Route: 065

REACTIONS (1)
  - Anaplastic thyroid cancer [Fatal]
